FAERS Safety Report 10427542 (Version 1)
Quarter: 2014Q3

REPORT INFORMATION
  Report Type: Spontaneous
  Country: CA (occurrence: CA)
  Receive Date: 20140903
  Receipt Date: 20140903
  Transmission Date: 20150326
  Serious: Yes (Life-Threatening, Hospitalization)
  Sender: FDA-Public Use
  Company Number: CA-BAUSCH-SYM-2014-24233

PATIENT
  Age: 16 Year
  Sex: Female

DRUGS (1)
  1. HERBESSER [Suspect]
     Active Substance: DILTIAZEM HYDROCHLORIDE
     Indication: PRODUCT USED FOR UNKNOWN INDICATION
     Route: 048
     Dates: start: 19980309, end: 19980309

REACTIONS (14)
  - Coagulopathy [Unknown]
  - Hypoxia [Unknown]
  - Pulmonary oedema [Unknown]
  - Mediastinal haemorrhage [Unknown]
  - Sinus arrest [Unknown]
  - Confusional state [Unknown]
  - Hypotension [Recovered/Resolved]
  - Intentional overdose [Unknown]
  - Cardiac arrest [Recovered/Resolved]
  - Renal failure [Recovered/Resolved]
  - Multi-organ disorder [Unknown]
  - Hepatic function abnormal [Unknown]
  - Encephalopathy [Unknown]
  - Nodal arrhythmia [Unknown]

NARRATIVE: CASE EVENT DATE: 19980309
